FAERS Safety Report 7969563 (Version 4)
Quarter: 2012Q4

REPORT INFORMATION
  Report Type: 
  Country: US (occurrence: US)
  Receive Date: 20110601
  Receipt Date: 20120924
  Transmission Date: 20130627
  Serious: Yes (Hospitalization)
  Sender: FDA-Public Use
  Company Number: US-BAYER-2011-046178

PATIENT
  Age: 28 Year
  Sex: Female
  Weight: 116 kg

DRUGS (13)
  1. YASMIN [Suspect]
     Indication: PREMENSTRUAL SYNDROME
     Dosage: UNK
     Dates: start: 200603, end: 20070706
  2. YASMIN [Suspect]
     Indication: DYSMENORRHOEA
  3. YASMIN [Suspect]
     Indication: PREMENSTRUAL SYNDROME
  4. YAZ [Suspect]
     Indication: PREMENSTRUAL SYNDROME
     Dosage: UNK
     Dates: start: 200603, end: 20070706
  5. NSAID^S [Concomitant]
     Dosage: PRN
     Dates: start: 2001, end: 201111
  6. VALTREX [Concomitant]
     Dosage: 1000 mg,
     Dates: start: 20040915, end: 20070527
  7. ZOLOFT [Concomitant]
     Dosage: UNK
     Dates: start: 20050811, end: 20100310
  8. NITROFURANTOINUM [Concomitant]
     Dosage: UNK
     Dates: start: 20061110
  9. NITROFURANTOINUM [Concomitant]
     Dosage: UNK
     Dates: start: 20070130
  10. NITROFURANTOINUM [Concomitant]
     Dosage: UNK
     Dates: start: 20090519
  11. LEVAQUIN [Concomitant]
     Dosage: UNK
     Dates: start: 2007
  12. BYETTA [Concomitant]
     Dosage: 10 mcg, BID
     Dates: start: 20080219, end: 20080428
  13. METFORMIN [Concomitant]
     Dosage: 500 mg, QD
     Dates: start: 20090224

REACTIONS (16)
  - Pelvic venous thrombosis [None]
  - Cholecystitis chronic [Unknown]
  - Cholelithiasis [Unknown]
  - Deep vein thrombosis [None]
  - Pain [None]
  - Emotional distress [None]
  - Anhedonia [None]
  - Oedema peripheral [None]
  - Dyspnoea [Unknown]
  - Chest pain [Unknown]
  - Nausea [Unknown]
  - Vomiting [Unknown]
  - Hyperhidrosis [Unknown]
  - Pain in extremity [None]
  - Oedema peripheral [None]
  - Anxiety [None]
